FAERS Safety Report 9503694 (Version 2)
Quarter: 2013Q3

REPORT INFORMATION
  Report Type: Report from Study
  Country: US (occurrence: US)
  Receive Date: 20130906
  Receipt Date: 20130906
  Transmission Date: 20140515
  Serious: Yes (Hospitalization, Other)
  Sender: FDA-Public Use
  Company Number: US-ABBOTT-13P-163-1129692-00

PATIENT
  Age: 30 Year
  Sex: Female

DRUGS (27)
  1. HUMIRA [Suspect]
     Indication: CROHN^S DISEASE
     Route: 058
     Dates: start: 20130801, end: 20130801
  2. HUMIRA [Suspect]
     Dates: start: 20130815, end: 20130815
  3. HUMIRA [Suspect]
  4. CIPROFLOXACIN [Suspect]
     Indication: PRODUCT USED FOR UNKNOWN INDICATION
  5. CIPROFLOXACIN [Suspect]
     Route: 048
     Dates: start: 201308
  6. CYMBALTA [Concomitant]
     Indication: FIBROMYALGIA
  7. CYMBALTA [Concomitant]
     Indication: DEPRESSION
  8. CYMBALTA [Concomitant]
     Indication: ANXIETY
  9. NEXIUM [Concomitant]
     Indication: GASTROOESOPHAGEAL REFLUX DISEASE
  10. 6-MP [Concomitant]
     Indication: CROHN^S DISEASE
  11. 6-MP [Concomitant]
  12. FLEXERIL [Concomitant]
     Indication: FIBROMYALGIA
     Dosage: AT BEDTIME
  13. SENNA [Concomitant]
     Indication: CONSTIPATION
     Dosage: 2 PRN
  14. DOCUSATE [Concomitant]
     Indication: CONSTIPATION
     Dosage: 2 PILLS PRN
  15. IMITREX [Concomitant]
     Indication: MIGRAINE
  16. ZOFRAN [Concomitant]
     Indication: NAUSEA
  17. PHENERGAN [Concomitant]
     Indication: NAUSEA
  18. FOLIC ACID [Concomitant]
     Indication: PRODUCT USED FOR UNKNOWN INDICATION
  19. OTI IC [Concomitant]
     Indication: CONSTIPATION
     Route: 054
  20. ZINC [Concomitant]
     Indication: PRODUCT USED FOR UNKNOWN INDICATION
     Dosage: IN THE MORNING
  21. VITAMIN D2 [Concomitant]
     Indication: PRODUCT USED FOR UNKNOWN INDICATION
  22. VITAMIN C [Concomitant]
     Indication: PRODUCT USED FOR UNKNOWN INDICATION
  23. VITAMIN B12 [Concomitant]
     Indication: PRODUCT USED FOR UNKNOWN INDICATION
     Route: 060
  24. APRI [Concomitant]
     Indication: CONTRACEPTION
     Dosage: 1 PILL
  25. NEURONTIN [Concomitant]
     Indication: PRODUCT USED FOR UNKNOWN INDICATION
  26. PREDNISONE [Concomitant]
     Indication: PRODUCT USED FOR UNKNOWN INDICATION
     Route: 048
  27. SUPPOSITORY LAXATIVE CVS BRAND [Concomitant]
     Indication: CONSTIPATION

REACTIONS (13)
  - Frequent bowel movements [Not Recovered/Not Resolved]
  - Drug ineffective [Unknown]
  - Abdominal pain [Not Recovered/Not Resolved]
  - Vomiting [Not Recovered/Not Resolved]
  - Gastrointestinal infection [Unknown]
  - Constipation [Not Recovered/Not Resolved]
  - Decreased appetite [Not Recovered/Not Resolved]
  - Weight increased [Not Recovered/Not Resolved]
  - Intestinal stenosis [Not Recovered/Not Resolved]
  - Nausea [Not Recovered/Not Resolved]
  - Pain [Not Recovered/Not Resolved]
  - Injection site pain [Not Recovered/Not Resolved]
  - Pruritus allergic [Unknown]
